FAERS Safety Report 8824668 (Version 2)
Quarter: 2012Q4

REPORT INFORMATION
  Report Type: 
  Country: NL (occurrence: NL)
  Receive Date: 20121004
  Receipt Date: 20121212
  Transmission Date: 20130627
  Serious: Yes (Hospitalization)
  Sender: FDA-Public Use
  Company Number: PHHY2012NL086501

PATIENT
  Sex: Male

DRUGS (7)
  1. ZOMETA [Suspect]
     Indication: METASTASIS
     Dosage: 4 mg, once every 28 days
     Route: 042
     Dates: start: 20111003
  2. ZOMETA [Suspect]
     Dosage: 4 mg, once every 28 days
     Route: 042
     Dates: start: 20120910
  3. ZEFFIX [Concomitant]
  4. CALCIUM CARBONATE [Concomitant]
  5. PRAVASTATIN [Concomitant]
  6. TACROLIMUS [Concomitant]
  7. VALSARTAN [Concomitant]

REACTIONS (1)
  - Cardiac disorder [Unknown]
